FAERS Safety Report 7910437-1 (Version None)
Quarter: 2011Q4

REPORT INFORMATION
  Report Type: 
  Country: None (occurrence: None)
  Receive Date: 20111111
  Receipt Date: 20111028
  Transmission Date: 20120403
  Serious: Yes (Hospitalization, Other)
  Sender: FDA-Public Use
  Company Number: CN-WATSON-2011-17660

PATIENT
  Age: 40 Year
  Sex: Male

DRUGS (5)
  1. MIRTAZAPINE [Suspect]
     Dosage: 45 MG, DAILY
  2. RISPERIDONE [Suspect]
     Indication: SCHIZOPHRENIA
     Dosage: 3 MG, DAILY
  3. RISPERIDONE [Suspect]
     Dosage: 8 MG, DAILY
  4. MIRTAZAPINE [Suspect]
     Indication: DEPRESSION
     Dosage: 60 MG, DAILY
  5. RISPERIDONE [Suspect]
     Dosage: 7 MG, DAILY

REACTIONS (3)
  - HYPOKINESIA [None]
  - PULMONARY EMBOLISM [None]
  - RHABDOMYOLYSIS [None]
